FAERS Safety Report 7583295-5 (Version None)
Quarter: 2011Q2

REPORT INFORMATION
  Report Type: 
  Country: None (occurrence: None)
  Receive Date: 20110630
  Receipt Date: 20110613
  Transmission Date: 20111010
  Serious: No
  Sender: FDA-Public Use
  Company Number: US-B.I. PHARMACEUTICALS,INC./RIDGEFIELD-2011-BP-13808BP

PATIENT
  Sex: Male

DRUGS (18)
  1. OMEPRAZOLE [Concomitant]
     Indication: GASTROOESOPHAGEAL REFLUX DISEASE
     Dosage: 20 MG
     Route: 048
  2. ONGLYZA [Concomitant]
     Indication: DIABETES MELLITUS
     Route: 048
  3. METFORMIN HCL [Concomitant]
     Indication: DIABETES MELLITUS
     Route: 048
  4. SIMVASTATIN [Concomitant]
     Indication: BLOOD CHOLESTEROL INCREASED
     Route: 048
  5. MELATONIN [Concomitant]
     Indication: INSOMNIA
     Dosage: 3 MG
     Route: 048
  6. MULTI-VITAMIN [Concomitant]
     Indication: PROPHYLAXIS
     Route: 048
  7. FUROSEMIDE [Concomitant]
     Indication: HYPERTENSION
     Dosage: 20 MG
     Route: 048
  8. LISINOPRIL [Concomitant]
     Indication: HYPERTENSION
     Dosage: 40 MG
     Route: 048
  9. MAGNESIUM [Concomitant]
     Indication: PROPHYLAXIS
     Route: 048
  10. LYRICA [Concomitant]
     Indication: NEUROPATHY PERIPHERAL
     Dosage: 600 MG
     Route: 048
  11. HYDROCODONE [Concomitant]
     Indication: ANALGESIC THERAPY
     Route: 048
  12. PRADAXA [Suspect]
     Indication: ATRIAL FIBRILLATION
     Dosage: 300 MG
     Route: 048
     Dates: start: 20110401
  13. DILTIAZEM CD [Concomitant]
     Indication: HYPERTENSION
     Dosage: 180 MG
     Route: 048
  14. POTASSIUM HCL [Concomitant]
     Indication: ELECTROLYTE SUBSTITUTION THERAPY
     Route: 048
  15. AMITRIPTYLINE [Concomitant]
     Indication: DEPRESSION
     Route: 048
  16. VIT D [Concomitant]
     Indication: PROPHYLAXIS
     Dosage: 5000 U
     Route: 048
  17. PRADAXA [Suspect]
     Indication: ANTICOAGULANT THERAPY
  18. GLYBURIDE [Concomitant]
     Indication: DIABETES MELLITUS
     Route: 048

REACTIONS (2)
  - DYSSTASIA [None]
  - ARTHRALGIA [None]
